FAERS Safety Report 8938771 (Version 2)
Quarter: 2012Q4

REPORT INFORMATION
  Report Type: 
  Country: JP (occurrence: JP)
  Receive Date: 20121203
  Receipt Date: 20121220
  Transmission Date: 20130627
  Serious: Yes (Hospitalization)
  Sender: FDA-Public Use
  Company Number: JP-JNJFOC-20121112369

PATIENT
  Age: 70 Year
  Sex: Male
  Weight: 43 kg

DRUGS (22)
  1. REMICADE [Suspect]
     Indication: CROHN^S DISEASE
     Route: 042
     Dates: start: 20101014
  2. REMICADE [Suspect]
     Indication: CROHN^S DISEASE
     Route: 042
     Dates: start: 20101209
  3. REMICADE [Suspect]
     Indication: CROHN^S DISEASE
     Route: 042
     Dates: start: 20110203
  4. REMICADE [Suspect]
     Indication: CROHN^S DISEASE
     Route: 042
     Dates: start: 20110331
  5. REMICADE [Suspect]
     Indication: CROHN^S DISEASE
     Route: 042
     Dates: start: 20110526
  6. REMICADE [Suspect]
     Indication: CROHN^S DISEASE
     Route: 042
     Dates: start: 20110721
  7. REMICADE [Suspect]
     Indication: CROHN^S DISEASE
     Route: 042
     Dates: start: 20110915
  8. REMICADE [Suspect]
     Indication: CROHN^S DISEASE
     Route: 042
     Dates: start: 20111110
  9. REMICADE [Suspect]
     Indication: CROHN^S DISEASE
     Route: 042
     Dates: start: 20120105
  10. REMICADE [Suspect]
     Indication: CROHN^S DISEASE
     Route: 042
     Dates: start: 20120301
  11. REMICADE [Suspect]
     Indication: CROHN^S DISEASE
     Route: 042
     Dates: start: 20120426
  12. REMICADE [Suspect]
     Indication: CROHN^S DISEASE
     Dosage: 14th infusion
     Route: 042
     Dates: start: 20120621
  13. REMICADE [Suspect]
     Indication: CROHN^S DISEASE
     Route: 042
     Dates: start: 20100916
  14. REMICADE [Suspect]
     Indication: CROHN^S DISEASE
     Dosage: total number of doses unknown
     Route: 042
     Dates: start: 20100902
  15. LEUKERIN [Suspect]
     Indication: CROHN^S DISEASE
     Dosage: 20g to 30g/day
     Route: 048
     Dates: start: 20120330, end: 20120623
  16. PREDNISOLONE [Suspect]
     Indication: CROHN^S DISEASE
     Route: 048
     Dates: start: 20120426, end: 20121003
  17. PENTASA [Concomitant]
     Indication: CROHN^S DISEASE
     Route: 048
  18. ELENTAL [Concomitant]
     Indication: CROHN^S DISEASE
     Route: 048
  19. OMEPRAL [Concomitant]
     Indication: GASTRIC ULCER
     Route: 048
  20. URSO [Concomitant]
     Indication: CHOLELITHIASIS
     Route: 048
  21. ARTIST [Concomitant]
     Indication: CARDIOMYOPATHY
     Route: 048
  22. DIOVAN [Concomitant]
     Indication: HYPERTENSION
     Route: 048

REACTIONS (3)
  - Pneumocystis jiroveci pneumonia [Recovering/Resolving]
  - Cytomegalovirus enterocolitis [Recovering/Resolving]
  - Anastomotic ulcer [Unknown]
